FAERS Safety Report 19202726 (Version 1)
Quarter: 2021Q2

REPORT INFORMATION
  Report Type: Spontaneous
  Country: US (occurrence: US)
  Receive Date: 20210502
  Receipt Date: 20210502
  Transmission Date: 20210717
  Serious: No
  Sender: FDA-Public Use
  Company Number: US-ORGANON-O2104USA001775

PATIENT
  Sex: Female
  Weight: 58.97 kg

DRUGS (1)
  1. ALENDRONATE SODIUM. [Suspect]
     Active Substance: ALENDRONATE SODIUM
     Indication: OSTEOPOROSIS
     Dosage: UNK
     Route: 048
     Dates: start: 2008

REACTIONS (3)
  - Nausea [Unknown]
  - Diarrhoea [Unknown]
  - Illness [Unknown]

NARRATIVE: CASE EVENT DATE: 2008
